FAERS Safety Report 6414389-5 (Version None)
Quarter: 2009Q4

REPORT INFORMATION
  Report Type: 
  Country: None (occurrence: None)
  Receive Date: 20091021
  Receipt Date: 20091012
  Transmission Date: 20100525
  Serious: Yes (Hospitalization)
  Sender: FDA-Public Use
  Company Number: 014863

PATIENT
  Sex: Female

DRUGS (1)
  1. PRIALT [Suspect]
     Indication: DRUG USE FOR UNKNOWN INDICATION
     Dosage: 1 UG, SINGLE, INTRATHECAL
     Route: 037
     Dates: start: 20090728, end: 20090728

REACTIONS (4)
  - HEADACHE [None]
  - HEMIPARESIS [None]
  - NAUSEA [None]
  - VERTIGO [None]
